FAERS Safety Report 23756044 (Version 1)
Quarter: 2024Q2

REPORT INFORMATION
  Report Type: Spontaneous
  Country: US (occurrence: None)
  Receive Date: 20240417
  Receipt Date: 20240417
  Transmission Date: 20240715
  Serious: Yes (Hospitalization)
  Sender: FDA-Public Use
  Company Number: None

PATIENT
  Age: 36 Year
  Sex: Male

DRUGS (1)
  1. HUMIRA [Suspect]
     Active Substance: ADALIMUMAB
     Indication: Acne conglobata
     Dosage: FREQUENCY : EVERY OTHER WEEK;?

REACTIONS (5)
  - Chest pain [None]
  - Heart rate irregular [None]
  - Insomnia [None]
  - Rash [None]
  - Post procedural complication [None]
